FAERS Safety Report 25167544 (Version 2)
Quarter: 2025Q4

REPORT INFORMATION
  Report Type: Spontaneous
  Country: US (occurrence: US)
  Receive Date: 20250407
  Receipt Date: 20251027
  Transmission Date: 20260118
  Serious: No
  Sender: SANOFI AVENTIS
  Company Number: US-SA-2025SA098966

PATIENT
  Age: 62 Year
  Sex: Female
  Weight: 43.18 kg

DRUGS (1)
  1. DUPIXENT [Suspect]
     Active Substance: DUPILUMAB
     Indication: Asthma
     Dosage: 300 MG, QOW
     Route: 058
     Dates: start: 202503

REACTIONS (3)
  - Chronic obstructive pulmonary disease [Unknown]
  - Cough [Unknown]
  - Wheezing [Unknown]

NARRATIVE: CASE EVENT DATE: 20250101
